FAERS Safety Report 8467008-0 (Version None)
Quarter: 2012Q2

REPORT INFORMATION
  Report Type: 
  Country: None (occurrence: None)
  Receive Date: 20120626
  Receipt Date: 20120620
  Transmission Date: 20120825
  Serious: Yes (Other)
  Sender: FDA-Public Use
  Company Number: US-BAYER-2012-050955

PATIENT
  Age: 54 Year
  Sex: Female

DRUGS (2)
  1. NEXAVAR [Suspect]
     Dosage: 400 MG, BID
     Dates: start: 20120521, end: 20120604
  2. NEXAVAR [Suspect]
     Indication: HEPATIC NEOPLASM MALIGNANT
     Dosage: UNK
     Dates: start: 20120401

REACTIONS (9)
  - SKIN FISSURES [None]
  - HYPERKERATOSIS [None]
  - CONSTIPATION [None]
  - PAIN OF SKIN [None]
  - FATIGUE [None]
  - ALOPECIA [None]
  - BLOOD PRESSURE DECREASED [None]
  - ABASIA [None]
  - BLISTER [None]
